FAERS Safety Report 9143296 (Version 3)
Quarter: 2013Q2

REPORT INFORMATION
  Report Type: Spontaneous
  Country: US (occurrence: US)
  Receive Date: 20130306
  Receipt Date: 20130429
  Transmission Date: 20140414
  Serious: Yes (Hospitalization, Other)
  Sender: FDA-Public Use
  Company Number: US-B.I. PHARMACEUTICALS,INC./RIDGEFIELD-2013-BI-05258BP

PATIENT
  Age: 68 Year
  Sex: Male
  Weight: 104.33 kg

DRUGS (15)
  1. PRADAXA [Suspect]
     Indication: ATRIAL FIBRILLATION
     Dosage: 300 MG
     Dates: start: 20111012, end: 20111229
  2. PRADAXA [Suspect]
     Dates: start: 20120103, end: 20120107
  3. JANUVIA [Concomitant]
     Dosage: 100 MG
     Route: 048
  4. CARVEDILOL [Concomitant]
     Dosage: 50 MG
     Route: 048
     Dates: start: 2006
  5. LASIX [Concomitant]
     Dosage: 20 MG
     Route: 048
  6. DIGOXIN [Concomitant]
     Dosage: 0.25 MG
     Route: 048
  7. ZOCOR [Concomitant]
     Dosage: 40 MG
     Route: 048
  8. ALLOPURINOL [Concomitant]
     Dosage: 300 MG
     Route: 048
  9. LISINOPRIL [Concomitant]
     Dosage: 30 MG
     Route: 048
  10. PRANDIN [Concomitant]
     Dosage: 3 MG
     Route: 048
  11. SPIRIVA [Concomitant]
     Dosage: 18 MCG
     Route: 048
  12. NIACIN [Concomitant]
     Dosage: 2000 MG
     Route: 048
  13. VIT D [Concomitant]
     Dosage: 200 MG
     Route: 048
  14. FE GLYCENATE [Concomitant]
     Dosage: 28 MG
     Route: 048
  15. LANTUS [Concomitant]
     Dosage: 42 U
     Route: 058

REACTIONS (3)
  - Epistaxis [Recovered/Resolved]
  - Epistaxis [Recovered/Resolved]
  - Coagulopathy [Unknown]
